FAERS Safety Report 5490388-5 (Version None)
Quarter: 2007Q4

REPORT INFORMATION
  Report Type: 
  Country: None (occurrence: None)
  Receive Date: 20071019
  Receipt Date: 20071010
  Transmission Date: 20080405
  Serious: Yes (Hospitalization)
  Sender: FDA-Public Use
  Company Number: PHEH2007US12552

PATIENT
  Sex: Female

DRUGS (1)
  1. LOTREL [Suspect]
     Indication: HYPERTENSION
     Dosage: 10/20 MG, UNK
     Route: 048
     Dates: start: 20040801

REACTIONS (7)
  - ANGIOEDEMA [None]
  - DYSPNOEA [None]
  - HEARING IMPAIRED [None]
  - PHARYNGITIS [None]
  - PHARYNGOLARYNGEAL PAIN [None]
  - SLEEP APNOEA SYNDROME [None]
  - URTICARIA [None]
